FAERS Safety Report 7519831-4 (Version None)
Quarter: 2011Q2

REPORT INFORMATION
  Report Type: 
  Country: None (occurrence: None)
  Receive Date: 20110602
  Receipt Date: 20110525
  Transmission Date: 20111010
  Serious: Yes (Hospitalization)
  Sender: FDA-Public Use
  Company Number: US-ALEXION PHARMACEUTICALS INC.-A201100011

PATIENT
  Sex: Female
  Weight: 92.971 kg

DRUGS (1)
  1. SOLIRIS [Suspect]
     Indication: PAROXYSMAL NOCTURNAL HAEMOGLOBINURIA
     Dosage: UNK, Q2W
     Route: 042

REACTIONS (9)
  - PHARYNGITIS STREPTOCOCCAL [None]
  - PAIN [None]
  - FLANK PAIN [None]
  - HEADACHE [None]
  - ANAEMIA [None]
  - DRUG EXPOSURE DURING PREGNANCY [None]
  - DYSURIA [None]
  - NAUSEA [None]
  - BACK PAIN [None]
